FAERS Safety Report 6016156-3 (Version None)
Quarter: 2008Q4

REPORT INFORMATION
  Report Type: 
  Country: None (occurrence: None)
  Receive Date: 20081222
  Receipt Date: 20081216
  Transmission Date: 20090506
  Serious: Yes (Hospitalization)
  Sender: FDA-Public Use
  Company Number: NZ-PURDUE-USA_2008_0036283

PATIENT
  Age: 88 Year
  Sex: Male

DRUGS (5)
  1. OXYCODONE HCL [Suspect]
     Indication: NECK PAIN
     Dosage: 10 MG, DAILY
     Route: 048
     Dates: start: 20080822, end: 20080826
  2. TRIAZOLAM [Concomitant]
     Indication: DRUG USE FOR UNKNOWN INDICATION
     Dosage: 250 MCG, DAILY
     Route: 048
  3. ACETAMINOPHEN [Concomitant]
     Indication: DRUG USE FOR UNKNOWN INDICATION
     Dosage: 4 GRAIN, DAILY
     Route: 048
  4. ACETYLSALICYLIC ACID [Concomitant]
     Indication: DRUG USE FOR UNKNOWN INDICATION
     Dosage: 100 MG, DAILY
     Route: 048
  5. MULTI-VITAMINS [Concomitant]
     Indication: DRUG USE FOR UNKNOWN INDICATION
     Dosage: UNK, UNK

REACTIONS (2)
  - DELIRIUM [None]
  - MEDICATION ERROR [None]
